FAERS Safety Report 5332343-1 (Version None)
Quarter: 2007Q2

REPORT INFORMATION
  Report Type: 
  Country: None (occurrence: None)
  Receive Date: 20070523
  Receipt Date: 20070518
  Transmission Date: 20071010
  Serious: Yes (Hospitalization)
  Sender: FDA-Public Use
  Company Number: A0651962A

PATIENT
  Age: 46 Year
  Sex: Female

DRUGS (7)
  1. TYKERB [Suspect]
     Indication: BREAST CANCER
     Dosage: 1250MG PER DAY
     Route: 048
     Dates: start: 20070503
  2. XELODA [Suspect]
     Dates: start: 20070503
  3. FUROSEMIDE [Concomitant]
  4. XELODA [Concomitant]
  5. COUMADIN [Concomitant]
  6. PROTONIX [Concomitant]
  7. FLEXERIL [Concomitant]

REACTIONS (3)
  - MUSCLE SPASMS [None]
  - PRURITUS [None]
  - RASH [None]
